FAERS Safety Report 22865392 (Version 2)
Quarter: 2023Q4

REPORT INFORMATION
  Report Type: Spontaneous
  Country: US (occurrence: US)
  Receive Date: 20230825
  Receipt Date: 20231205
  Transmission Date: 20240109
  Serious: Yes (Other)
  Sender: FDA-Public Use
  Company Number: US-JNJFOC-20230839867

PATIENT
  Age: 79 Year
  Sex: Male

DRUGS (2)
  1. SIMPONI ARIA [Suspect]
     Active Substance: GOLIMUMAB
     Indication: Rheumatoid arthritis
     Route: 041
  2. SIMPONI ARIA [Suspect]
     Active Substance: GOLIMUMAB
     Route: 041
     Dates: start: 20230815, end: 20230815

REACTIONS (2)
  - Hypersensitivity [Recovered/Resolved]
  - Hypertension [Recovered/Resolved]

NARRATIVE: CASE EVENT DATE: 20230815
